FAERS Safety Report 11156590 (Version 5)
Quarter: 2018Q2

REPORT INFORMATION
  Report Type: Report from Study
  Country: JP (occurrence: JP)
  Receive Date: 20150602
  Receipt Date: 20180511
  Transmission Date: 20180711
  Serious: Yes (Hospitalization)
  Sender: FDA-Public Use
  Company Number: JP-PFIZER INC-2015183990

PATIENT
  Age: 68 Year
  Sex: Female
  Weight: 39.9 kg

DRUGS (5)
  1. FOLIAMIN [Concomitant]
     Active Substance: FOLIC ACID
     Dosage: 1 DF, WEEKLY
     Route: 048
  2. LOXONIN [Concomitant]
     Active Substance: LOXOPROFEN SODIUM
     Dosage: 2 DF, DAILY
     Route: 048
  3. XELJANZ [Suspect]
     Active Substance: TOFACITINIB CITRATE
     Indication: RHEUMATOID ARTHRITIS
     Dosage: 5 MG, 2X/DAY
     Route: 048
     Dates: start: 20141030, end: 20150522
  4. MUCOSTA [Concomitant]
     Active Substance: REBAMIPIDE
     Dosage: 2 DF, DAILY
     Route: 048
  5. METOLATE [Suspect]
     Active Substance: METHOTREXATE
     Dosage: 2 MG, WEEKLY
     Route: 048
     Dates: end: 20150528

REACTIONS (2)
  - Extradural abscess [Recovering/Resolving]
  - Sepsis [Recovered/Resolved]

NARRATIVE: CASE EVENT DATE: 201505
